FAERS Safety Report 25836095 (Version 1)
Quarter: 2025Q3

REPORT INFORMATION
  Report Type: Spontaneous
  Country: CA (occurrence: CA)
  Receive Date: 20250923
  Receipt Date: 20250923
  Transmission Date: 20251020
  Serious: Yes (Life-Threatening)
  Sender: TEVA
  Company Number: CA-TEVA-VS-3375247

PATIENT
  Age: 89 Year
  Sex: Female

DRUGS (1)
  1. SPIRONOLACTONE [Suspect]
     Active Substance: SPIRONOLACTONE
     Indication: Product used for unknown indication
     Route: 065

REACTIONS (4)
  - Hyperkalaemia [Unknown]
  - Product dispensing error [Unknown]
  - Acute kidney injury [Unknown]
  - Hyponatraemia [Unknown]
